FAERS Safety Report 6271065-X (Version None)
Quarter: 2009Q3

REPORT INFORMATION
  Report Type: 
  Country: None (occurrence: None)
  Receive Date: 20090716
  Receipt Date: 20090710
  Transmission Date: 20100115
  Serious: Yes (Hospitalization)
  Sender: FDA-Public Use
  Company Number: JP-ABBOTT-09P-087-0576559-00

PATIENT
  Sex: Female
  Weight: 50 kg

DRUGS (5)
  1. CLARITH 200MG TABLETS [Suspect]
     Indication: BRONCHITIS
     Route: 048
     Dates: start: 20070702, end: 20070702
  2. MEPTIN [Suspect]
     Indication: BRONCHITIS
     Dates: start: 20070702, end: 20070702
  3. CLEANAL [Concomitant]
     Indication: BRONCHITIS
     Route: 048
     Dates: start: 20070702, end: 20070702
  4. MAOBUSHISAISHINTO [Concomitant]
     Indication: PHARYNGITIS
     Route: 048
     Dates: start: 20070702, end: 20070702
  5. TRANSAMIN [Concomitant]
     Indication: PHARYNGITIS
     Route: 048
     Dates: start: 20070702, end: 20070702

REACTIONS (4)
  - DYSPNOEA [None]
  - HYPOAESTHESIA [None]
  - TACHYCARDIA [None]
  - TREMOR [None]
